FAERS Safety Report 6802130-3 (Version None)
Quarter: 2010Q2

REPORT INFORMATION
  Report Type: 
  Country: None (occurrence: None)
  Receive Date: 20100629
  Receipt Date: 20080527
  Transmission Date: 20101027
  Serious: No
  Sender: FDA-Public Use
  Company Number: US-PFIZER INC-2006092535

PATIENT
  Sex: Female
  Weight: 104 kg

DRUGS (3)
  1. BEXTRA [Suspect]
     Indication: ARTHRALGIA
     Dates: start: 20020821
  2. CLONIDINE [Concomitant]
     Indication: HYPERTENSION
     Route: 065
  3. PROPRANOLOL [Concomitant]
     Indication: HYPERTENSION
     Route: 065

REACTIONS (5)
  - BLOOD PRESSURE INCREASED [None]
  - CHEST PAIN [None]
  - HYPOAESTHESIA [None]
  - NERVOUS SYSTEM DISORDER [None]
  - SLEEP DISORDER [None]
